FAERS Safety Report 7681853-0 (Version None)
Quarter: 2011Q3

REPORT INFORMATION
  Report Type: 
  Country: None (occurrence: None)
  Receive Date: 20110813
  Receipt Date: 20110808
  Transmission Date: 20111222
  Serious: Yes (Other)
  Sender: FDA-Public Use
  Company Number: US-CEPHALON-US005633

PATIENT
  Sex: Female
  Weight: 52 kg

DRUGS (6)
  1. PROVIGIL [Suspect]
     Indication: NARCOLEPSY
     Route: 048
     Dates: start: 19991201, end: 20000510
  2. ORTHO-NOVUM 7/7/7-21 [Suspect]
     Indication: CONTRACEPTION
     Route: 048
  3. VIVACTIL [Concomitant]
     Indication: DEPRESSION
     Route: 048
     Dates: start: 20000201
  4. WELLBUTRIN [Concomitant]
     Indication: DEPRESSION
     Route: 048
     Dates: end: 20000101
  5. PRENATAL [Concomitant]
     Indication: NUTRITIONAL SUPPORT
     Route: 048
  6. FERROUS SULFATE TAB [Concomitant]
     Indication: NUTRITIONAL SUPPORT
     Route: 048

REACTIONS (5)
  - PREGNANCY ON ORAL CONTRACEPTIVE [None]
  - GESTATIONAL DIABETES [None]
  - DRUG INTERACTION [None]
  - PREMATURE LABOUR [None]
  - MATERNAL EXPOSURE DURING PREGNANCY [None]
